FAERS Safety Report 16848227 (Version 1)
Quarter: 2019Q3

REPORT INFORMATION
  Report Type: Report from Study
  Country: US (occurrence: US)
  Receive Date: 20190925
  Receipt Date: 20190925
  Transmission Date: 20191005
  Serious: Yes (Hospitalization)
  Sender: FDA-Public Use
  Company Number: US-ROCHE-2410701

PATIENT
  Age: 74 Year
  Sex: Male
  Weight: 64.1 kg

DRUGS (8)
  1. CABOZANTINIB [Suspect]
     Active Substance: CABOZANTINIB
     Indication: HEAD AND NECK CANCER
     Dosage: MOST RECENT DOSE OF CABOZANTINIB: 04/SEP/2019
     Route: 048
     Dates: start: 20190809
  2. ACETAMINOPHEN. [Concomitant]
     Active Substance: ACETAMINOPHEN
  3. ZYRTEC [Concomitant]
     Active Substance: CETIRIZINE HYDROCHLORIDE
  4. ATARAX [Concomitant]
     Active Substance: HYDROXYZINE HYDROCHLORIDE
  5. TRENTAL [Concomitant]
     Active Substance: PENTOXIFYLLINE
  6. COZAAR [Concomitant]
     Active Substance: LOSARTAN POTASSIUM
  7. ATEZOLIZUMAB. [Suspect]
     Active Substance: ATEZOLIZUMAB
     Indication: HEAD AND NECK CANCER
     Dosage: MOST RECENT DOSE OF ATEZOLIZUMAB: 28/AUG/2019,
     Route: 042
     Dates: start: 20190809
  8. SYNTHROID [Concomitant]
     Active Substance: LEVOTHYROXINE SODIUM

REACTIONS (1)
  - Sinus node dysfunction [Not Recovered/Not Resolved]

NARRATIVE: CASE EVENT DATE: 20190904
